FAERS Safety Report 8326008-1 (Version None)
Quarter: 2012Q2

REPORT INFORMATION
  Report Type: 
  Country: None (occurrence: None)
  Receive Date: 20120501
  Receipt Date: 20101005
  Transmission Date: 20120825
  Serious: No
  Sender: FDA-Public Use
  Company Number: US-TEVA-2010002896

PATIENT
  Sex: Female
  Weight: 68.1 kg

DRUGS (2)
  1. MULTITUDE OF MEDICATIONS [Concomitant]
  2. NUVIGIL [Suspect]
     Indication: SOMNOLENCE
     Dosage: 300 MILLIGRAM;
     Route: 048
     Dates: start: 20090701, end: 20090701

REACTIONS (2)
  - HEADACHE [None]
  - SKIN LESION [None]
